FAERS Safety Report 11412669 (Version 1)
Quarter: 2015Q3

REPORT INFORMATION
  Report Type: Spontaneous
  Country: US (occurrence: US)
  Receive Date: 20150821
  Receipt Date: 20150821
  Transmission Date: 20151125
  Serious: No
  Sender: FDA-Public Use
  Company Number: US-ELI_LILLY_AND_COMPANY-US201108007309

PATIENT
  Sex: Female

DRUGS (2)
  1. HUMULIN N [Suspect]
     Active Substance: INSULIN HUMAN
     Indication: DIABETES MELLITUS
     Dosage: 10 U, BID
  2. BYETTA [Concomitant]
     Active Substance: EXENATIDE

REACTIONS (7)
  - Vision blurred [Unknown]
  - Malaise [Unknown]
  - Starvation [Unknown]
  - Diarrhoea [Unknown]
  - Rash [Unknown]
  - Abdominal pain upper [Unknown]
  - Blood glucose increased [Unknown]
